FAERS Safety Report 5298820-7 (Version None)
Quarter: 2007Q2

REPORT INFORMATION
  Report Type: 
  Country: None (occurrence: None)
  Receive Date: 20070417
  Receipt Date: 20070411
  Transmission Date: 20071010
  Serious: Yes (Death, Life-Threatening)
  Sender: FDA-Public Use
  Company Number: AU-NOVOPROD-262655

PATIENT
  Age: 65 Year
  Sex: Male
  Weight: 102 kg

DRUGS (3)
  1. NOVOSEVEN [Suspect]
     Dosage: 2.4 MG, UNK
     Route: 042
     Dates: start: 20061122, end: 20061122
  2. NOVOSEVEN [Suspect]
     Dosage: 2.4 MG, UNK
     Route: 042
     Dates: start: 20061122, end: 20061122
  3. PHYTOMENADION [Concomitant]
     Indication: HAEMORRHAGE

REACTIONS (1)
  - RENAL FAILURE ACUTE [None]
